FAERS Safety Report 21069616 (Version 1)
Quarter: 2022Q3

REPORT INFORMATION
  Report Type: Spontaneous
  Country: US (occurrence: US)
  Receive Date: 20220712
  Receipt Date: 20220712
  Transmission Date: 20221027
  Serious: No
  Sender: FDA-Public Use
  Company Number: US-ASTELLAS-2022US005469

PATIENT
  Age: 83 Year
  Sex: Male

DRUGS (1)
  1. MYRBETRIQ [Suspect]
     Active Substance: MIRABEGRON
     Indication: Bladder disorder
     Route: 065
     Dates: start: 202201

REACTIONS (4)
  - Sinus disorder [Unknown]
  - Arthralgia [Unknown]
  - Dry mouth [Unknown]
  - Constipation [Unknown]
